FAERS Safety Report 23761992 (Version 2)
Quarter: 2024Q2

REPORT INFORMATION
  Report Type: Spontaneous
  Country: US (occurrence: US)
  Receive Date: 20240419
  Receipt Date: 20240430
  Transmission Date: 20240716
  Serious: Yes (Life-Threatening, Other)
  Sender: FDA-Public Use
  Company Number: US-PFIZER INC-PV202400050940

PATIENT
  Age: 43 Year
  Sex: Female

DRUGS (9)
  1. METHYLPREDNISOLONE SODIUM SUCCINATE [Interacting]
     Active Substance: METHYLPREDNISOLONE SODIUM SUCCINATE
     Indication: Multiple sclerosis
     Dosage: 960 MG
     Dates: start: 199212
  2. METHYLPREDNISOLONE SODIUM SUCCINATE [Interacting]
     Active Substance: METHYLPREDNISOLONE SODIUM SUCCINATE
     Dosage: 500 MG, DAILY
     Route: 042
     Dates: start: 199612
  3. WARFARIN [Interacting]
     Active Substance: WARFARIN
     Indication: Aortic stenosis
     Dosage: UNK
  4. POTASSIUM [Concomitant]
     Active Substance: POTASSIUM
     Dosage: 10 MEQ
     Route: 048
  5. RANITIDINE [Concomitant]
     Active Substance: RANITIDINE
     Dosage: 300 MG
     Route: 048
  6. DIGITALIS [Concomitant]
     Active Substance: DIGITALIS
     Dosage: UNK
  7. CONJUGATED ESTROGENS [Concomitant]
     Active Substance: ESTROGENS, CONJUGATED
     Dosage: UNK
  8. MEDROXYPROGESTERONE ACETATE [Concomitant]
     Active Substance: MEDROXYPROGESTERONE ACETATE
     Dosage: UNK
  9. LACTULOSE [Concomitant]
     Active Substance: LACTULOSE
     Dosage: UNK, ELIXIR

REACTIONS (2)
  - Drug interaction [Recovering/Resolving]
  - Prothrombin time prolonged [Recovering/Resolving]
